FAERS Safety Report 7871796-1 (Version None)
Quarter: 2011Q4

REPORT INFORMATION
  Report Type: 
  Country: None (occurrence: None)
  Receive Date: 20111029
  Receipt Date: 20110308
  Transmission Date: 20120403
  Serious: No
  Sender: FDA-Public Use
  Company Number: US-AMGEN-USASP2011012986

PATIENT
  Sex: Female

DRUGS (1)
  1. ENBREL [Suspect]
     Indication: ANKYLOSING SPONDYLITIS
     Dosage: 25 MG, EVERY 3 DAYS
     Dates: start: 20040501

REACTIONS (3)
  - INJECTION SITE NERVE DAMAGE [None]
  - ANKYLOSING SPONDYLITIS [None]
  - INJECTION SITE HAEMORRHAGE [None]
